FAERS Safety Report 7915249 (Version 4)
Quarter: 2013Q1

REPORT INFORMATION
  Report Type: Spontaneous
  Country: JP (occurrence: None)
  Receive Date: 20110405
  Receipt Date: 20130116
  Transmission Date: 20140127
  Serious: Yes (Hospitalization)
  Sender: FDA-Public Use
  Company Number: JP-2011-10545

PATIENT
  Age: 82 Year
  Sex: Male
  Weight: 33.5 kg

DRUGS (10)
  1. SAMSCA [Suspect]
     Indication: CARDIAC FAILURE CONGESTIVE
     Route: 048
     Dates: start: 20110302, end: 20110307
  2. WARFARIN (WARFARIN POTASSIUM) [Concomitant]
  3. LASIX [Concomitant]
  4. ASPIRIN [Concomitant]
  5. PIMOBENDAN (PIMOBENDAN) [Concomitant]
  6. DIART (AZOEMIDE) [Concomitant]
  7. FLUITRAN (TRICHLOMETHIAZIDE) [Concomitant]
  8. LANIRAPID (METILDIGOXIN) [Concomitant]
  9. HANP (CARPERITIDE) [Concomitant]
  10. SELERA (EPLERENONE) [Concomitant]

REACTIONS (7)
  - Hyponatraemia [None]
  - Oedema peripheral [None]
  - Brain natriuretic peptide increased [None]
  - Dehydration [None]
  - Platelet count decreased [None]
  - Haemoglobin decreased [None]
  - Cardiac failure [None]
